FAERS Safety Report 7301980-7 (Version None)
Quarter: 2011Q1

REPORT INFORMATION
  Report Type: 
  Country: None (occurrence: None)
  Receive Date: 20110218
  Receipt Date: 20110212
  Transmission Date: 20110831
  Serious: Yes (Other)
  Sender: FDA-Public Use
  Company Number: US-B.I. PHARMACEUTICALS,INC./RIDGEFIELD-2011-BP-02872BP

PATIENT
  Sex: Male

DRUGS (8)
  1. SEPTRA [Concomitant]
     Indication: PROPHYLAXIS URINARY TRACT INFECTION
     Route: 048
  2. SIMVASTATIN [Concomitant]
     Indication: BLOOD CHOLESTEROL INCREASED
     Route: 048
  3. NOVOLOG [Concomitant]
     Indication: DIABETES MELLITUS
     Route: 048
  4. TOPROL-XL [Concomitant]
     Indication: HYPERTENSION
     Route: 048
  5. FINASTERIDE [Concomitant]
     Route: 048
  6. FLOMAX [Concomitant]
     Route: 048
  7. PRADAXA [Suspect]
     Dosage: 150 MG
     Route: 048
     Dates: start: 20110101
  8. KEPPRA [Concomitant]
     Indication: CONVULSION
     Dosage: 2500 MG
     Route: 048

REACTIONS (1)
  - CONVULSION [None]
